FAERS Safety Report 8250834-0 (Version None)
Quarter: 2012Q1

REPORT INFORMATION
  Report Type: 
  Country: None (occurrence: None)
  Receive Date: 20120328
  Receipt Date: 20120314
  Transmission Date: 20120608
  Serious: Yes (Hospitalization)
  Sender: FDA-Public Use
  Company Number: JP-2011-12935

PATIENT
  Age: 70 Year
  Sex: Male
  Weight: 63 kg

DRUGS (17)
  1. LASIX [Suspect]
     Indication: CARDIAC FAILURE CONGESTIVE
     Dosage: 40 MG MILLIGRAM(S), QD, ORAL; ORAL
     Route: 048
     Dates: start: 20110906, end: 20110917
  2. LASIX [Suspect]
     Indication: CARDIAC FAILURE CONGESTIVE
     Dosage: 40 MG MILLIGRAM(S), QD, ORAL; ORAL
     Route: 048
     Dates: start: 20110121, end: 20110905
  3. DOXAZOSIN MESYLATE [Concomitant]
  4. ANPLAG (SARPOGRELATE HDYROCHLORIDE) TABLET [Concomitant]
  5. ADALAT CR (NIFEDIPINE) TABLET [Concomitant]
  6. PLETAL [Suspect]
     Indication: PERIPHERAL ARTERIAL OCCLUSIVE DISEASE
     Dosage: 50 MG MILLIGRAM(S), BID, ORAL; 200 MG MILLIGRAM(S) DAILY DOSE, ORAL
     Route: 048
     Dates: start: 20110721, end: 20110817
  7. PLETAL [Suspect]
     Indication: PERIPHERAL ARTERIAL OCCLUSIVE DISEASE
     Dosage: 50 MG MILLIGRAM(S), BID, ORAL; 200 MG MILLIGRAM(S) DAILY DOSE, ORAL
     Route: 048
     Dates: start: 20110818, end: 20110831
  8. NOVORAPID (INSULIN ASPART) INJECTION [Concomitant]
  9. MAGMITT (MAGNESIUM OXIDE) TABLET [Concomitant]
  10. TANATRIL (IMIDAPRIL HYDROCHLORIDE) TABLET [Concomitant]
  11. MEXITIL [Concomitant]
  12. ZETIA (EZETIMIBE) TABLET [Concomitant]
  13. PROCYLIN (BERAPROST SODIUM) TABLET [Concomitant]
  14. LENDORMIN (BROTIZOLAM) TABLET [Concomitant]
  15. JANUVIA [Concomitant]
  16. MICARDIS [Concomitant]
  17. GASTER D (FAMOTIDINE) TABLET [Concomitant]

REACTIONS (2)
  - RENAL FAILURE ACUTE [None]
  - PERIPHERAL ARTERIAL OCCLUSIVE DISEASE [None]
